FAERS Safety Report 7418804-X (Version None)
Quarter: 2011Q2

REPORT INFORMATION
  Report Type: 
  Country: None (occurrence: None)
  Receive Date: 20110408
  Receipt Date: 20110328
  Transmission Date: 20111010
  Serious: Yes (Hospitalization)
  Sender: FDA-Public Use
  Company Number: 1000019736

PATIENT
  Age: 59 Year
  Sex: Female

DRUGS (4)
  1. IDEOLAXIL (SENNA, CASSIA AUGUSTIFOLIA, ALOE) (TABLETS) [Suspect]
     Indication: CONSTIPATION
     Dosage: 1 DOSAGE FORM (1 DOSAGE FORMS,1 IN 1 D),ORAL
     Route: 048
     Dates: start: 20000101, end: 20101201
  2. PHYTO TRANSIT PROTECTION ET ACTIVATION INTESTINALE (SENNA, HORSERADISH [Suspect]
     Indication: CONSTIPATION
     Dosage: (MAXIMUM),ORAL
     Route: 048
     Dates: start: 20110101, end: 20110131
  3. NEBIVOLOL HCL [Suspect]
     Indication: HYPERTENSION
     Dosage: ORAL
     Route: 048
     Dates: end: 20110101
  4. ARKO TRANSIT INFUSION (FENNEL, CHICORY, MALVA, RHUBAB) [Suspect]
     Indication: CONSTIPATION
     Dosage: ORAL
     Route: 048
     Dates: start: 20110101, end: 20110131

REACTIONS (1)
  - HEPATITIS [None]
